FAERS Safety Report 9536714 (Version 1)
Quarter: 2013Q3

REPORT INFORMATION
  Report Type: Spontaneous
  Country: US (occurrence: None)
  Receive Date: 20130918
  Receipt Date: 20130918
  Transmission Date: 20140515
  Serious: Yes (Hospitalization)
  Sender: FDA-Public Use
  Company Number: None

PATIENT
  Age: 88 Year
  Sex: Male
  Weight: 61.9 kg

DRUGS (1)
  1. LISINOPRIL [Suspect]
     Indication: CARDIAC FAILURE CONGESTIVE
     Route: 048
     Dates: start: 20130824, end: 20130828

REACTIONS (6)
  - Blood urea increased [None]
  - Hyperkalaemia [None]
  - Fatigue [None]
  - Electrocardiogram ST segment depression [None]
  - Electrolyte imbalance [None]
  - Blood creatinine increased [None]
